FAERS Safety Report 10677323 (Version 1)
Quarter: 2014Q4

REPORT INFORMATION
  Report Type: Spontaneous
  Country: US (occurrence: US)
  Receive Date: 20141226
  Receipt Date: 20141226
  Transmission Date: 20150529
  Serious: No
  Sender: FDA-Public Use
  Company Number: US-BAUSCH-SYM-2013-14014

PATIENT
  Age: 47 Year
  Sex: Female

DRUGS (1)
  1. XENAZINE [Suspect]
     Active Substance: TETRABENAZINE
     Indication: TARDIVE DYSKINESIA
     Dosage: 50MG AM AND 12.5MG AFTERNOON
     Route: 048
     Dates: start: 20101110

REACTIONS (1)
  - Feeling of despair [Unknown]

NARRATIVE: CASE EVENT DATE: 20131127
